FAERS Safety Report 8560525 (Version 3)
Quarter: 2013Q1

REPORT INFORMATION
  Report Type: Report from Study
  Country: JP (occurrence: JP)
  Receive Date: 20120514
  Receipt Date: 20130121
  Transmission Date: 20140127
  Serious: Yes (Disabling, Other)
  Sender: FDA-Public Use
  Company Number: JP-VERTEX PHARMACEUTICALS INC.-AE-2012-004558

PATIENT
  Age: 68 Year
  Sex: Male

DRUGS (13)
  1. VX-950 (TELAPREVIR) [Suspect]
     Indication: CHRONIC HEPATITIS C
     Dosage: 2250 MG, QD
     Route: 048
     Dates: start: 20120202, end: 20120412
  2. VX-950 (TELAPREVIR) [Suspect]
     Dosage: 1500 MG, QD
     Route: 048
     Dates: start: 20120413, end: 20120426
  3. PEGINTERFERON ALFA-2B [Suspect]
     Indication: CHRONIC HEPATITIS C
     Dosage: 1.5 ?G/KG, QW
     Route: 058
     Dates: start: 20120202, end: 20120712
  4. REBETOL [Suspect]
     Indication: CHRONIC HEPATITIS C
     Dosage: 800 MG, QD
     Route: 048
     Dates: start: 20120202, end: 20120229
  5. REBETOL [Suspect]
     Dosage: 600 MG, QD
     Route: 048
     Dates: start: 20120301, end: 20120405
  6. REBETOL [Suspect]
     Dosage: 400 MG, QD
     Route: 048
     Dates: start: 20120406, end: 20120419
  7. REBETOL [Suspect]
     Dosage: 200 MG, QD
     Route: 048
     Dates: start: 20120420, end: 20120718
  8. EUGLUCON [Concomitant]
     Dosage: 2.5 MG, UNK
     Route: 048
  9. ACTOS [Concomitant]
     Dosage: 15 MG, QD
     Route: 048
     Dates: end: 20120404
  10. ACTOS [Concomitant]
     Dosage: 30 MG, QD
     Route: 048
     Dates: start: 20120405
  11. VOLTAREN [Concomitant]
     Route: 054
     Dates: start: 20120202, end: 20120202
  12. EPADEL S [Concomitant]
     Dosage: 1800 MG, QD
     Route: 048
     Dates: end: 20120502
  13. GASTER D [Concomitant]
     Dosage: 20 MG, QD
     Dates: start: 20120427

REACTIONS (3)
  - Subdural haematoma [Recovered/Resolved]
  - Skull fractured base [Recovered/Resolved]
  - Ear canal abrasion [Recovered/Resolved]
